FAERS Safety Report 17400812 (Version 1)
Quarter: 2020Q1

REPORT INFORMATION
  Report Type: Spontaneous
  Country: GR (occurrence: GR)
  Receive Date: 20200211
  Receipt Date: 20200211
  Transmission Date: 20200409
  Serious: Yes (Hospitalization, Other)
  Sender: FDA-Public Use
  Company Number: GR-JNJFOC-2006110340

PATIENT
  Sex: Female

DRUGS (1)
  1. REGAINE UNSPECIFIED [Suspect]
     Active Substance: MINOXIDIL
     Indication: ALOPECIA
     Dosage: DAILY DOSE TEXT: 50 MG BID
     Route: 061
     Dates: start: 20060908, end: 20060911

REACTIONS (8)
  - Throat irritation [Recovered/Resolved]
  - Application site erythema [Recovered/Resolved]
  - Application site irritation [Recovered/Resolved]
  - Application site pain [Recovered/Resolved]
  - Oedema mouth [Recovered/Resolved]
  - Respiratory disorder [Recovered/Resolved]
  - Angioedema [Recovered/Resolved]
  - Rash vesicular [Recovered/Resolved]

NARRATIVE: CASE EVENT DATE: 20060912
